FAERS Safety Report 7050393-4 (Version None)
Quarter: 2010Q4

REPORT INFORMATION
  Report Type: 
  Country: None (occurrence: None)
  Receive Date: 20101013
  Receipt Date: 20101001
  Transmission Date: 20110411
  Serious: Yes (Death)
  Sender: FDA-Public Use
  Company Number: 011016

PATIENT
  Age: 68 Year
  Sex: Male
  Weight: 66.5 kg

DRUGS (7)
  1. PLETAL [Suspect]
     Indication: CEREBRAL INFARCTION
     Dosage: 200 MG, BID, ORAL
     Route: 048
     Dates: start: 20100906, end: 20100913
  2. IRBETAN (IRBESARTAN) [Concomitant]
  3. T-PA (T-PA) [Concomitant]
  4. ASPIRIN [Concomitant]
  5. LANSOPRAZOLE [Concomitant]
  6. ALLOPURINOL [Concomitant]
  7. NIZATIDINE [Concomitant]

REACTIONS (11)
  - ABDOMINAL DISTENSION [None]
  - AORTIC ARTERIOSCLEROSIS [None]
  - BLOOD PRESSURE DECREASED [None]
  - CEREBRAL ARTERY OCCLUSION [None]
  - COLD SWEAT [None]
  - DISSEMINATED INTRAVASCULAR COAGULATION [None]
  - HAEMOGLOBIN DECREASED [None]
  - INTRA-ABDOMINAL HAEMORRHAGE [None]
  - MALAISE [None]
  - MESENTERIC ARTERY EMBOLISM [None]
  - SHOCK HAEMORRHAGIC [None]
